FAERS Safety Report 9828509 (Version 3)
Quarter: 2014Q2

REPORT INFORMATION
  Report Type: Report from Study
  Country: FR (occurrence: FR)
  Receive Date: 20140117
  Receipt Date: 20140606
  Transmission Date: 20141212
  Serious: Yes (Other)
  Sender: FDA-Public Use
  Company Number: FR-JNJFOC-20131110265

PATIENT
  Age: 42 Year
  Sex: Male
  Weight: 43 kg

DRUGS (9)
  1. BEDAQUILINE [Suspect]
     Indication: TUBERCULOSIS
     Route: 048
     Dates: start: 20131122, end: 20131220
  2. BEDAQUILINE [Suspect]
     Indication: TUBERCULOSIS
     Dosage: 2 TABLETS IN THE MORNING AND EVENING DURING 15 DAYS.
     Route: 048
     Dates: start: 20130802
  3. AMIKACIN [Suspect]
     Indication: TUBERCULOSIS
     Route: 030
  4. AMIKACIN [Suspect]
     Indication: TUBERCULOSIS
     Route: 030
     Dates: start: 20131125, end: 20131220
  5. ZYVOXID [Suspect]
     Indication: TUBERCULOSIS
     Route: 048
  6. ZYVOXID [Suspect]
     Indication: TUBERCULOSIS
     Route: 048
     Dates: start: 20131122, end: 20131220
  7. CYCLOSERINE [Suspect]
     Indication: TUBERCULOSIS
     Route: 048
     Dates: start: 20131122, end: 20131220
  8. IZILOX [Concomitant]
     Indication: TUBERCULOSIS
  9. DOLIPRANE [Concomitant]

REACTIONS (6)
  - Eosinophilia [Unknown]
  - Renal failure [Unknown]
  - Pruritus generalised [Unknown]
  - Blood creatinine increased [Unknown]
  - Therapy cessation [Unknown]
  - Inappropriate schedule of drug administration [Recovered/Resolved]
